FAERS Safety Report 12367150 (Version 4)
Quarter: 2021Q3

REPORT INFORMATION
  Report Type: Spontaneous
  Country: US (occurrence: US)
  Receive Date: 20160513
  Receipt Date: 20210924
  Transmission Date: 20211014
  Serious: Yes (Other)
  Sender: FDA-Public Use
  Company Number: US-JNJFOC-20160500313

PATIENT
  Age: 12 Year
  Sex: Male

DRUGS (7)
  1. RISPERDAL [Suspect]
     Active Substance: RISPERIDONE
     Indication: TOURETTE^S DISORDER
     Route: 048
     Dates: start: 199508, end: 19970103
  2. RISPERDAL [Suspect]
     Active Substance: RISPERIDONE
     Indication: IMPULSIVE BEHAVIOUR
     Route: 048
     Dates: start: 199705, end: 19980107
  3. RISPERDAL [Suspect]
     Active Substance: RISPERIDONE
     Dosage: 1 MG IN AM AND 0.5 MG IN PM
     Route: 048
     Dates: start: 19990922, end: 200005
  4. RISPERDAL [Suspect]
     Active Substance: RISPERIDONE
     Route: 048
     Dates: start: 200005, end: 200008
  5. RISPERDAL [Suspect]
     Active Substance: RISPERIDONE
     Route: 048
     Dates: start: 200008, end: 20030722
  6. RISPERDAL [Suspect]
     Active Substance: RISPERIDONE
     Route: 048
     Dates: start: 19980126, end: 199909
  7. RISPERDAL [Suspect]
     Active Substance: RISPERIDONE
     Indication: BEHAVIOUR DISORDER
     Route: 048

REACTIONS (3)
  - Gynaecomastia [Unknown]
  - Obesity [Unknown]
  - Drug ineffective [Unknown]

NARRATIVE: CASE EVENT DATE: 1996
